FAERS Safety Report 24821940 (Version 1)
Quarter: 2025Q1

REPORT INFORMATION
  Report Type: Spontaneous
  Country: US (occurrence: US)
  Receive Date: 20250108
  Receipt Date: 20250108
  Transmission Date: 20250409
  Serious: No
  Sender: SANOFI AVENTIS
  Company Number: US-SA-2025SA005021

PATIENT
  Age: 19 Year
  Sex: Male

DRUGS (2)
  1. DUPIXENT [Suspect]
     Active Substance: DUPILUMAB
     Indication: Dermatitis atopic
     Dosage: 300 MG, QOW
     Route: 058
     Dates: start: 202105
  2. STELARA [Concomitant]
     Active Substance: USTEKINUMAB

REACTIONS (4)
  - Abdominal pain [Unknown]
  - Gastrointestinal motility disorder [Unknown]
  - Condition aggravated [Unknown]
  - Dermatitis atopic [Unknown]

NARRATIVE: CASE EVENT DATE: 20241201
